FAERS Safety Report 15473409 (Version 3)
Quarter: 2019Q1

REPORT INFORMATION
  Report Type: Spontaneous
  Country: US (occurrence: US)
  Receive Date: 20181008
  Receipt Date: 20190220
  Transmission Date: 20190417
  Serious: Yes (Hospitalization, Other)
  Sender: FDA-Public Use
  Company Number: US-PFIZER INC-2018399235

PATIENT
  Age: 58 Year
  Sex: Male

DRUGS (7)
  1. LIPITOR [Concomitant]
     Active Substance: ATORVASTATIN CALCIUM
     Dosage: UNK
  2. GENTAMICIN SULFATE. [Suspect]
     Active Substance: GENTAMICIN SULFATE
     Indication: CHOLANGITIS
     Dosage: 440 MG, 1X/DAY
     Route: 042
     Dates: start: 20140309, end: 20140312
  3. DIOVAN [Concomitant]
     Active Substance: VALSARTAN
     Dosage: UNK
  4. LEVAQUIN [Concomitant]
     Active Substance: LEVOFLOXACIN
     Dosage: UNK
  5. LEVOFLOXACIN. [Suspect]
     Active Substance: LEVOFLOXACIN
     Indication: CHOLANGITIS
     Dosage: UNK
     Dates: start: 201403
  6. FLAGYL [Suspect]
     Active Substance: METRONIDAZOLE\METRONIDAZOLE HYDROCHLORIDE
     Indication: CHOLANGITIS
     Dosage: UNK
     Dates: start: 201403
  7. ASPIRIN 81 [Concomitant]
     Active Substance: ASPIRIN
     Dosage: UNK

REACTIONS (13)
  - Vomiting [Unknown]
  - Ear disorder [Unknown]
  - Back pain [Unknown]
  - Nausea [Unknown]
  - Vestibular disorder [Unknown]
  - Dizziness [Unknown]
  - Abdominal pain [Unknown]
  - Abdominal pain [Unknown]
  - Tenderness [Not Recovered/Not Resolved]
  - White blood cell count decreased [Unknown]
  - Oscillopsia [Not Recovered/Not Resolved]
  - Condition aggravated [Unknown]
  - Bowel movement irregularity [Unknown]

NARRATIVE: CASE EVENT DATE: 20140929
